FAERS Safety Report 9333803 (Version 1)
Quarter: 2013Q2

REPORT INFORMATION
  Report Type: Spontaneous
  Country: US (occurrence: US)
  Receive Date: 20130606
  Receipt Date: 20130606
  Transmission Date: 20140414
  Serious: No
  Sender: FDA-Public Use
  Company Number: US-AMGEN-USASP2013005782

PATIENT
  Age: 82 Year
  Sex: Female
  Weight: 89.8 kg

DRUGS (6)
  1. PROLIA [Suspect]
     Indication: OSTEOPENIA
     Dosage: UNK
     Dates: start: 201208
  2. CARBIDOPA AND LEVODOPA [Concomitant]
     Dosage: UNK
  3. LOSARTAN [Concomitant]
     Dosage: UNK
  4. CALCIUM WITH VITAMIN D3 [Concomitant]
     Dosage: UNK
  5. CENTRUM SILVER                     /02363801/ [Concomitant]
     Dosage: UNK
  6. PRAMIPEXOLE [Concomitant]

REACTIONS (2)
  - Weight increased [Recovered/Resolved]
  - Increased appetite [Recovered/Resolved]
